FAERS Safety Report 8192174-4 (Version None)
Quarter: 2012Q1

REPORT INFORMATION
  Report Type: 
  Country: None (occurrence: None)
  Receive Date: 20120307
  Receipt Date: 20120229
  Transmission Date: 20120608
  Serious: Yes (Disabling)
  Sender: FDA-Public Use
  Company Number: GB-PFIZER INC-2012055116

PATIENT
  Age: 63 Year
  Sex: Female

DRUGS (5)
  1. FESOTERODINE [Suspect]
     Indication: BLADDER DISORDER
     Dosage: 4 MG, 2X/DAY
     Route: 048
     Dates: start: 20111126, end: 20120212
  2. METFORMIN [Concomitant]
     Dosage: 2 DF, 2X/DAY
     Route: 048
  3. ACETYLSALICYLIC ACID [Concomitant]
     Dosage: 75 MG, UNK
     Route: 048
  4. RAMIPRIL [Concomitant]
     Dosage: 5 MG, UNK
     Route: 048
  5. SIMVASTATIN [Concomitant]
     Dosage: 10 MG, 1X/DAY
     Route: 048

REACTIONS (4)
  - EYE PAIN [None]
  - EYE IRRITATION [None]
  - INSOMNIA [None]
  - PHOTOPHOBIA [None]
